FAERS Safety Report 4846062-9 (Version None)
Quarter: 2005Q4

REPORT INFORMATION
  Report Type: 
  Country: None (occurrence: None)
  Receive Date: 20051130
  Receipt Date: 20051117
  Transmission Date: 20060501
  Serious: Yes (Hospitalization)
  Sender: FDA-Public Use
  Company Number: 2005US001604

PATIENT
  Age: 8 Year
  Sex: Female

DRUGS (5)
  1. PROGRAF [Suspect]
     Indication: PROPHYLAXIS AGAINST TRANSPLANT REJECTION
  2. DACLIZUMAB (DACLIZUMAB)) [Suspect]
     Indication: RENAL TRANSPLANT
     Dosage: 25 MG, UID/QD, IV NOS
     Route: 042
     Dates: start: 20050906, end: 20050906
  3. DACLIZUMAB (DACLIZUMAB)) [Suspect]
     Indication: RENAL TRANSPLANT
     Dosage: 25 MG, UID/QD, IV NOS
     Route: 042
     Dates: start: 20050921, end: 20050921
  4. DACLIZUMAB (DACLIZUMAB)) [Suspect]
     Indication: RENAL TRANSPLANT
     Dosage: 25 MG, UID/QD, IV NOS
     Route: 042
     Dates: start: 20051010, end: 20051010
  5. DACLIZUMAB (DACLIZUMAB)) [Suspect]
     Indication: RENAL TRANSPLANT
     Dosage: 25 MG, UID/QD, IV NOS
     Route: 042
     Dates: start: 20051117, end: 20051117

REACTIONS (4)
  - BACTERIAL PYELONEPHRITIS [None]
  - COMPLICATIONS OF TRANSPLANTED KIDNEY [None]
  - CULTURE URINE POSITIVE [None]
  - KLEBSIELLA INFECTION [None]
